FAERS Safety Report 10889973 (Version 3)
Quarter: 2015Q2

REPORT INFORMATION
  Report Type: Spontaneous
  Country: JP (occurrence: JP)
  Receive Date: 20150305
  Receipt Date: 20150428
  Transmission Date: 20150821
  Serious: Yes (Other)
  Sender: FDA-Public Use
  Company Number: JP-ROCHE-1547607

PATIENT
  Age: 9 Decade
  Sex: Female

DRUGS (8)
  1. BONVIVA [Suspect]
     Active Substance: IBANDRONATE SODIUM
     Indication: PRODUCT USED FOR UNKNOWN INDICATION
     Route: 042
     Dates: start: 201402
  2. MAGLAX [Concomitant]
     Active Substance: MAGNESIUM OXIDE
     Route: 048
  3. ARGAMATE [Concomitant]
     Active Substance: POLYSTYRENE
     Dosage: DOSAGE IS UNCERTAIN.
     Route: 065
  4. ARGAMATE [Concomitant]
     Active Substance: POLYSTYRENE
     Route: 065
  5. NEXIUM [Concomitant]
     Active Substance: ESOMEPRAZOLE MAGNESIUM
     Route: 048
  6. NORVASC [Concomitant]
     Active Substance: AMLODIPINE BESYLATE
     Route: 048
  7. MEVALOTIN [Concomitant]
     Active Substance: PRAVASTATIN SODIUM
     Route: 048
  8. ARGAMATE [Concomitant]
     Active Substance: POLYSTYRENE
     Route: 065

REACTIONS (1)
  - Hyperkalaemia [Unknown]
